FAERS Safety Report 23485758 (Version 5)
Quarter: 2024Q2

REPORT INFORMATION
  Report Type: Spontaneous
  Country: US (occurrence: US)
  Receive Date: 20240206
  Receipt Date: 20240514
  Transmission Date: 20240716
  Serious: Yes (Hospitalization, Other)
  Sender: FDA-Public Use
  Company Number: US-Blueprint Medicines Corporation-2202

PATIENT
  Age: 70 Year
  Sex: Male

DRUGS (9)
  1. AYVAKIT [Suspect]
     Active Substance: AVAPRITINIB
     Indication: Systemic mastocytosis
     Route: 048
     Dates: start: 20240122
  2. AYVAKIT [Suspect]
     Active Substance: AVAPRITINIB
     Route: 048
     Dates: start: 20240122
  3. AYVAKIT [Suspect]
     Active Substance: AVAPRITINIB
     Route: 065
     Dates: start: 20240122, end: 20240430
  4. AMLODIPINE [Concomitant]
     Active Substance: AMLODIPINE BESYLATE
     Indication: Product used for unknown indication
     Route: 065
  5. MEGACE ES [Concomitant]
     Active Substance: MEGESTROL ACETATE
     Indication: Product used for unknown indication
     Route: 065
  6. CARVEDILOL [Concomitant]
     Active Substance: CARVEDILOL
     Indication: Product used for unknown indication
     Route: 065
  7. LOSARTAN [Concomitant]
     Active Substance: LOSARTAN
     Indication: Product used for unknown indication
     Route: 065
  8. FERROUS SULFATE [Concomitant]
     Active Substance: FERROUS SULFATE
     Indication: Product used for unknown indication
     Route: 065
  9. RYDAPT [Concomitant]
     Active Substance: MIDOSTAURIN
     Indication: Product used for unknown indication
     Route: 065

REACTIONS (13)
  - Full blood count decreased [Unknown]
  - Laboratory test abnormal [Unknown]
  - Condition aggravated [Not Recovered/Not Resolved]
  - Periorbital swelling [Not Recovered/Not Resolved]
  - Hypersomnia [Unknown]
  - Swelling face [Recovered/Resolved]
  - Swelling [Not Recovered/Not Resolved]
  - Eye swelling [Not Recovered/Not Resolved]
  - Pruritus [Recovered/Resolved]
  - Constipation [Recovered/Resolved]
  - Fatigue [Unknown]
  - Red blood cell count decreased [Recovered/Resolved]
  - White blood cell count decreased [Recovered/Resolved]

NARRATIVE: CASE EVENT DATE: 20240430
